FAERS Safety Report 8421666-5 (Version None)
Quarter: 2012Q2

REPORT INFORMATION
  Report Type: 
  Country: None (occurrence: None)
  Receive Date: 20120608
  Receipt Date: 20120601
  Transmission Date: 20120825
  Serious: Yes (Other)
  Sender: FDA-Public Use
  Company Number: FR-ASTELLAS-2012EU003986

PATIENT
  Sex: Male
  Weight: 24.7 kg

DRUGS (1)
  1. MICAFUNGIN INJECTION [Suspect]
     Indication: INFECTION PROPHYLAXIS
     Dosage: 12 MG, UNKNOWN/D
     Route: 042
     Dates: start: 20120321, end: 20120414

REACTIONS (1)
  - HEPATIC LESION [None]
